FAERS Safety Report 5954730-0 (Version None)
Quarter: 2008Q4

REPORT INFORMATION
  Report Type: 
  Country: None (occurrence: None)
  Receive Date: 20081117
  Receipt Date: 20081113
  Transmission Date: 20090506
  Serious: Yes (Death, Hospitalization, Other)
  Sender: FDA-Public Use
  Company Number: PHEH2008US05425

PATIENT
  Sex: Male

DRUGS (8)
  1. EXJADE [Suspect]
     Indication: HAEMOCHROMATOSIS
     Dosage: 1500 MG, QD
     Dates: start: 20070413, end: 20070605
  2. EXJADE [Suspect]
     Dosage: 1 TAB 500 MG
     Dates: start: 20070724, end: 20070724
  3. DESFERAL [Suspect]
     Dosage: 1 UNIT PER UNIT OF BLOOD
     Dates: start: 20070201
  4. DESFERAL [Suspect]
     Dosage: 1 SHOT DAILY
     Dates: start: 20080201
  5. BLOOD TRANSFUSION, AUXILIARY PRODUCTS [Concomitant]
     Dosage: UNK
     Dates: start: 20070201
  6. AVANDIA [Concomitant]
     Indication: DIABETES MELLITUS
     Dosage: 2 MG, BID
     Route: 048
     Dates: end: 20070521
  7. NASACORT [Concomitant]
     Indication: HYPERSENSITIVITY
     Dosage: 2 SPRAYS PER NOSTRIL PRN
     Dates: end: 20070521
  8. MUCINEX [Concomitant]
     Indication: HYPERSENSITIVITY
     Dosage: PRN
     Dates: end: 20070521

REACTIONS (7)
  - ABDOMINAL PAIN [None]
  - CEREBROVASCULAR ACCIDENT [None]
  - DIARRHOEA [None]
  - HAEMOGLOBIN DECREASED [None]
  - HYPERSENSITIVITY [None]
  - TRANSFUSION REACTION [None]
  - WHITE BLOOD CELL COUNT DECREASED [None]
